FAERS Safety Report 7918869-2 (Version None)
Quarter: 2011Q4

REPORT INFORMATION
  Report Type: 
  Country: None (occurrence: None)
  Receive Date: 20111116
  Receipt Date: 20111109
  Transmission Date: 20120403
  Serious: Yes (Death, Other)
  Sender: FDA-Public Use
  Company Number: PHHY2011IT95512

PATIENT
  Sex: Female

DRUGS (10)
  1. RAMIPRIL [Concomitant]
     Dosage: 2.5 MG, UNK
  2. ADEMETIONINE [Concomitant]
  3. BISOPROLOL FUMARATE [Concomitant]
     Dosage: 1.25 MG, UNK
  4. OMEPRAZOLE [Concomitant]
     Dosage: 20 MG, UNK
  5. SIMVASTATIN [Suspect]
     Indication: HYPERCHOLESTEROLAEMIA
     Dosage: 1 DF, QD
     Route: 048
     Dates: start: 20110918, end: 20111012
  6. COUMADIN [Concomitant]
  7. HALOPERIDOL [Concomitant]
     Dosage: 0.3 MG, UNK
  8. ALLOPURINOL [Concomitant]
  9. LANOXIN [Concomitant]
     Dosage: 0.125 MG, UNK
  10. ACETAMINOPHEN [Concomitant]
     Dosage: 1000 MG, UNK

REACTIONS (8)
  - CARDIOMEGALY [None]
  - PAIN [None]
  - AORTIC ARTERIOSCLEROSIS [None]
  - RHABDOMYOLYSIS [None]
  - MUSCULAR WEAKNESS [None]
  - DEATH [None]
  - HEPATIC FAILURE [None]
  - RENAL FAILURE [None]
